FAERS Safety Report 10800569 (Version 1)
Quarter: 2015Q1

REPORT INFORMATION
  Report Type: Report from Study
  Country: US (occurrence: US)
  Receive Date: 20150216
  Receipt Date: 20150216
  Transmission Date: 20150721
  Serious: No
  Sender: FDA-Public Use
  Company Number: US-ABBVIE-14K-163-1244807-00

PATIENT
  Age: 71 Year
  Sex: Female

DRUGS (3)
  1. COSOPT [Concomitant]
     Active Substance: DORZOLAMIDE HYDROCHLORIDE\TIMOLOL MALEATE
     Indication: GLAUCOMA
     Dosage: ONE DROP EACH EYE
  2. HUMIRA [Suspect]
     Active Substance: ADALIMUMAB
     Indication: COLITIS ULCERATIVE
     Dates: start: 20140314
  3. ASACOL [Concomitant]
     Active Substance: MESALAMINE
     Indication: COLITIS ULCERATIVE

REACTIONS (4)
  - Injection site bruising [Recovering/Resolving]
  - Incorrect dose administered [Recovering/Resolving]
  - Injection site pain [Recovering/Resolving]
  - Device issue [Unknown]

NARRATIVE: CASE EVENT DATE: 20140530
